FAERS Safety Report 10103082 (Version 1)
Quarter: 2014Q2

REPORT INFORMATION
  Report Type: Spontaneous
  Country: RU (occurrence: RU)
  Receive Date: 20140424
  Receipt Date: 20140424
  Transmission Date: 20141212
  Serious: Yes (Other)
  Sender: FDA-Public Use
  Company Number: PHHY2014RU049907

PATIENT
  Age: 54 Year
  Sex: Female

DRUGS (2)
  1. FORADIL [Suspect]
     Dosage: UNK
     Route: 055
  2. FORADIL [Suspect]
     Dosage: UNK, DOSE REDUCED
     Route: 055

REACTIONS (1)
  - Convulsion [Recovered/Resolved]
